FAERS Safety Report 15479825 (Version 1)
Quarter: 2018Q4

REPORT INFORMATION
  Report Type: Spontaneous
  Country: CA (occurrence: CA)
  Receive Date: 20181009
  Receipt Date: 20181009
  Transmission Date: 20190205
  Serious: Yes (Other)
  Sender: FDA-Public Use
  Company Number: CA-ACTELION-A-US2018-179783

PATIENT
  Age: 73 Year
  Sex: Female

DRUGS (8)
  1. VENTOLIN [Concomitant]
     Active Substance: ALBUTEROL SULFATE
  2. ADEMPAS [Concomitant]
     Active Substance: RIOCIGUAT
  3. POTASSIUM [Concomitant]
     Active Substance: POTASSIUM
  4. ALDACTONE [Concomitant]
     Active Substance: SPIRONOLACTONE
  5. PREVACID [Concomitant]
     Active Substance: LANSOPRAZOLE
  6. UPTRAVI [Suspect]
     Active Substance: SELEXIPAG
     Indication: PULMONARY ARTERIAL HYPERTENSION
     Dosage: 400 MCG, BID
     Route: 048
     Dates: start: 20161107
  7. LASIX [Concomitant]
     Active Substance: FUROSEMIDE
  8. OPSUMIT [Suspect]
     Active Substance: MACITENTAN
     Indication: PULMONARY ARTERIAL HYPERTENSION
     Dosage: 10 MG, UNK
     Route: 048
     Dates: start: 20140814

REACTIONS (2)
  - Foot fracture [Not Recovered/Not Resolved]
  - Oedema [Not Recovered/Not Resolved]

NARRATIVE: CASE EVENT DATE: 20180924
